FAERS Safety Report 8517827 (Version 4)
Quarter: 2013Q2

REPORT INFORMATION
  Report Type: Spontaneous
  Country: US (occurrence: US)
  Receive Date: 20120417
  Receipt Date: 20130418
  Transmission Date: 20140414
  Serious: No
  Sender: FDA-Public Use
  Company Number: GB-ASTRAZENECA-2011SE48688

PATIENT
  Age: 67 Year
  Sex: Female

DRUGS (15)
  1. NEXIUM [Suspect]
     Indication: GASTROOESOPHAGEAL REFLUX DISEASE
     Route: 048
  2. NEXIUM [Suspect]
     Indication: GASTROOESOPHAGEAL REFLUX DISEASE
     Route: 048
  3. NEXIUM [Suspect]
     Indication: GASTROOESOPHAGEAL REFLUX DISEASE
     Route: 048
  4. SEROQUEL XR [Suspect]
     Indication: DEPRESSION
     Route: 048
  5. SEROQUEL XR [Suspect]
     Indication: DEPRESSION
     Route: 048
  6. TRIAMTERENE-HCTZ [Concomitant]
  7. CYMBALTA [Concomitant]
  8. CLONAZEPAM [Concomitant]
  9. HYDROCODON ACETAMINOPHN [Concomitant]
  10. FENTANYL [Concomitant]
  11. FUROSEMIDE [Concomitant]
  12. KLOR-CON [Concomitant]
  13. ALPRAZOLAM [Concomitant]
  14. VENLAFAXINE HCL [Concomitant]
  15. KLONOPIN [Concomitant]

REACTIONS (15)
  - Discomfort [Unknown]
  - Chest pain [Unknown]
  - Thinking abnormal [Unknown]
  - Swelling [Unknown]
  - Regurgitation [Unknown]
  - Sleep disorder due to a general medical condition [Unknown]
  - Fibromyalgia [Unknown]
  - Arthritis [Unknown]
  - Amnesia [Unknown]
  - Dyspepsia [Unknown]
  - Eructation [Unknown]
  - Malaise [Unknown]
  - Anxiety [Unknown]
  - Inappropriate schedule of drug administration [Unknown]
  - Drug dose omission [Unknown]
